FAERS Safety Report 6072364-7 (Version None)
Quarter: 2009Q1

REPORT INFORMATION
  Report Type: 
  Country: None (occurrence: None)
  Receive Date: 20090210
  Receipt Date: 20090203
  Transmission Date: 20090719
  Serious: Yes (Other)
  Sender: FDA-Public Use
  Company Number: PHHY2008DE19104

PATIENT
  Age: 47 Year
  Sex: Male

DRUGS (4)
  1. TEGRETOL [Suspect]
     Indication: EPILEPSY
     Dosage: 2000 MG
     Route: 048
     Dates: start: 19900101
  2. GABAPENTIN [Concomitant]
     Indication: EPILEPSY
     Dosage: UNK
     Route: 048
  3. PRIMIDONE [Concomitant]
     Dosage: UNK
     Route: 048
  4. BETA BLOCKING AGENTS [Concomitant]
     Indication: GLAUCOMA

REACTIONS (6)
  - CERVICAL ROOT PAIN [None]
  - MOVEMENT DISORDER [None]
  - MUSCLE CONTRACTURE [None]
  - MUSCLE DISORDER [None]
  - MUSCULOSKELETAL STIFFNESS [None]
  - SURGERY [None]
